FAERS Safety Report 21024997 (Version 1)
Quarter: 2022Q2

REPORT INFORMATION
  Report Type: Spontaneous
  Country: None (occurrence: DE)
  Receive Date: 20220629
  Receipt Date: 20220629
  Transmission Date: 20220721
  Serious: Yes (Other)
  Sender: FDA-Public Use
  Company Number: DE-Ascend Therapeutics US, LLC-2130408

PATIENT
  Age: 55 Year
  Sex: Female
  Weight: 59 kg

DRUGS (6)
  1. ESTROGEL [Suspect]
     Active Substance: ESTRADIOL
     Indication: Product used for unknown indication
     Route: 065
  2. ESTROGEL [Suspect]
     Active Substance: ESTRADIOL
  3. ESTRADIOL HEMIHYDRATE [Suspect]
     Active Substance: ESTRADIOL HEMIHYDRATE
     Route: 065
  4. ESTRADIOL HEMIHYDRATE [Suspect]
     Active Substance: ESTRADIOL HEMIHYDRATE
     Route: 065
  5. PROGESTERONE [Suspect]
     Active Substance: PROGESTERONE
     Route: 065
  6. PROGESTERONE [Suspect]
     Active Substance: PROGESTERONE
     Route: 065

REACTIONS (6)
  - Postmenopausal haemorrhage [Unknown]
  - Cardiac fibrillation [Unknown]
  - Uterine polyp [Unknown]
  - Palpitations [Unknown]
  - Glucose tolerance impaired [Unknown]
  - Inappropriate schedule of product administration [None]
